FAERS Safety Report 25434288 (Version 5)
Quarter: 2025Q3

REPORT INFORMATION
  Report Type: Spontaneous
  Country: US (occurrence: US)
  Receive Date: 20250613
  Receipt Date: 20250808
  Transmission Date: 20251021
  Serious: No
  Sender: PFIZER
  Company Number: US-PFIZER INC-202500115255

PATIENT
  Age: 73 Year
  Sex: Female

DRUGS (2)
  1. GENOTROPIN [Suspect]
     Active Substance: SOMATROPIN
     Dates: start: 202502
  2. GENOTROPIN [Suspect]
     Active Substance: SOMATROPIN
     Dosage: 0.4 MG, DAILY

REACTIONS (5)
  - Drug dose omission by device [Unknown]
  - Device breakage [Unknown]
  - Device defective [Unknown]
  - Device use error [Unknown]
  - Product prescribing error [Unknown]

NARRATIVE: CASE EVENT DATE: 20250201
